FAERS Safety Report 13911012 (Version 4)
Quarter: 2018Q3

REPORT INFORMATION
  Report Type: Spontaneous
  Country: FR (occurrence: FR)
  Receive Date: 20170828
  Receipt Date: 20180710
  Transmission Date: 20181010
  Serious: Yes (Hospitalization)
  Sender: FDA-Public Use
  Company Number: FR-TEVA-798908ROM

PATIENT
  Age: 28 Year
  Sex: Male

DRUGS (8)
  1. ALKERAN [Suspect]
     Active Substance: MELPHALAN
     Dosage: 290 MILLIGRAM DAILY; FORM: LYOPHILISATE AND SOLUTION FOR PARENTERAL USE
     Route: 041
     Dates: start: 20160118, end: 20160118
  2. MELPHALAN. [Suspect]
     Active Substance: MELPHALAN
     Indication: B-CELL LYMPHOMA
     Route: 041
     Dates: start: 20160118, end: 20160118
  3. ETOPOSIDE. [Suspect]
     Active Substance: ETOPOSIDE
     Indication: B-CELL LYMPHOMA
     Dosage: 420 MILLIGRAM DAILY;
     Route: 041
     Dates: start: 20160114, end: 20160117
  4. LEVACT [Suspect]
     Active Substance: BENDAMUSTINE HYDROCHLORIDE
     Indication: B-CELL LYMPHOMA
     Dosage: 420 MILLIGRAM DAILY; FORM: POWDER FOR SOLUTION TO DILUTE
     Route: 041
     Dates: start: 20160112, end: 20160113
  5. SOLU?MEDROL [Concomitant]
     Active Substance: METHYLPREDNISOLONE SODIUM SUCCINATE
     Indication: PRODUCT USED FOR UNKNOWN INDICATION
     Route: 065
     Dates: start: 20160112, end: 20160117
  6. EMEND [Concomitant]
     Active Substance: APREPITANT
     Indication: PRODUCT USED FOR UNKNOWN INDICATION
     Dosage: 80 MILLIGRAM DAILY;
     Route: 065
     Dates: start: 20160112, end: 20160120
  7. ZOPHREN [Concomitant]
     Active Substance: ONDANSETRON
     Indication: PRODUCT USED FOR UNKNOWN INDICATION
     Route: 065
     Dates: start: 20160112, end: 20160118
  8. CYTARABINE SANDOZ 100 MG/ML [Suspect]
     Active Substance: CYTARABINE
     Indication: B-CELL LYMPHOMA
     Dosage: 840 MILLIGRAM DAILY;
     Route: 041
     Dates: start: 20160114, end: 20160117

REACTIONS (1)
  - Febrile bone marrow aplasia [Recovered/Resolved]

NARRATIVE: CASE EVENT DATE: 20160121
